FAERS Safety Report 18546637 (Version 3)
Quarter: 2020Q4

REPORT INFORMATION
  Report Type: Report from Study
  Country: KR (occurrence: KR)
  Receive Date: 20201125
  Receipt Date: 20201228
  Transmission Date: 20210114
  Serious: Yes (Hospitalization)
  Sender: FDA-Public Use
  Company Number: KR-CELGENEUS-KOR-20201104936

PATIENT
  Age: 70 Year
  Sex: Female
  Weight: 55 kg

DRUGS (13)
  1. FEDRATINIB [Suspect]
     Active Substance: FEDRATINIB
     Indication: PRIMARY MYELOFIBROSIS
     Dosage: 400 MG X 1 X 1 DAYS
     Route: 048
     Dates: start: 20201005, end: 20201115
  2. TRESTAN [Concomitant]
     Indication: PROPHYLAXIS
  3. DICHLOZID [Concomitant]
     Indication: PROTEINURIA
     Dosage: 1 TABLET X 1 X 1 DAYS
     Route: 048
     Dates: start: 20200312, end: 20201012
  4. MEGACE [Concomitant]
     Active Substance: MEGESTROL ACETATE
     Indication: PROPHYLAXIS
  5. SYNTHROID [Concomitant]
     Active Substance: LEVOTHYROXINE SODIUM
     Indication: HYPOTHYROIDISM
     Dosage: 0.075 MG X 1 X 1 DAYS
     Route: 048
     Dates: start: 20190603
  6. VACRAX OINT 5% [Concomitant]
     Indication: HERPES VIRUS INFECTION
     Dosage: 5 G X PRN
     Route: 061
     Dates: start: 20200319
  7. BEAROBAN OINT [Concomitant]
     Indication: PRODUCT USED FOR UNKNOWN INDICATION
     Dosage: 10 G X PRN
     Route: 061
     Dates: start: 20200317
  8. BEARSE [Concomitant]
     Active Substance: DIMETHICONE\PANCRELIPASE\URSODIOL
     Indication: PROPHYLAXIS
     Dosage: 1 TABLET X 3 X 1 DAYS
     Route: 048
     Dates: start: 20200323
  9. LASIX [Concomitant]
     Active Substance: FUROSEMIDE
     Indication: PROTEINURIA
     Dosage: 0.5 TABLET X 2 X 1 DAYS
     Route: 048
     Dates: start: 20200423, end: 20201012
  10. MULEX [Concomitant]
     Indication: SPINAL STENOSIS
     Dosage: 1 TABLET X 3 X 1 DAYS
     Route: 048
     Dates: start: 20200702
  11. RUXOLITINIB [Suspect]
     Active Substance: RUXOLITINIB
     Indication: PRIMARY MYELOFIBROSIS
     Dosage: 10 MG X 2 X 1 DAYS
     Route: 048
     Dates: start: 20200326, end: 20200520
  12. MEGACE [Concomitant]
     Active Substance: MEGESTROL ACETATE
     Indication: APPETITE DISORDER
     Dosage: 5 ML X 1 X 1 DAYS
     Route: 048
     Dates: start: 20200618
  13. TRESTAN [Concomitant]
     Indication: APPETITE DISORDER
     Dosage: 1 CAPSULE X 2 X 1 DAYS
     Route: 048
     Dates: start: 20200618

REACTIONS (1)
  - Dyspnoea [Recovered/Resolved]

NARRATIVE: CASE EVENT DATE: 20201102
